FAERS Safety Report 9324350 (Version 1)
Quarter: 2013Q2

REPORT INFORMATION
  Report Type: Report from Study
  Country: FR (occurrence: FR)
  Receive Date: 20130603
  Receipt Date: 20130603
  Transmission Date: 20140414
  Serious: Yes (Other)
  Sender: FDA-Public Use
  Company Number: FR-BAXTER-2013BAX020232

PATIENT
  Sex: Male

DRUGS (2)
  1. ADVATE [Suspect]
     Indication: PRODUCT USED FOR UNKNOWN INDICATION
     Route: 058
     Dates: start: 2008, end: 2013
  2. FEIBA 500 U/20 ML, POUDRE ET SOLVANT POUR SOLUTION INJECTABLE [Suspect]
     Indication: PRODUCT USED FOR UNKNOWN INDICATION
     Route: 042
     Dates: start: 2008, end: 2013

REACTIONS (4)
  - Factor VIII inhibition [Not Recovered/Not Resolved]
  - Drug effect incomplete [Not Recovered/Not Resolved]
  - Arthropathy [Not Recovered/Not Resolved]
  - Incorrect route of drug administration [Unknown]
